FAERS Safety Report 6878926-9 (Version None)
Quarter: 2010Q3

REPORT INFORMATION
  Report Type: 
  Country: None (occurrence: None)
  Receive Date: 20100728
  Receipt Date: 20100715
  Transmission Date: 20110219
  Serious: Yes (Other)
  Sender: FDA-Public Use
  Company Number: US-BAYER-201017425BCC

PATIENT
  Age: 87 Year
  Sex: Female
  Weight: 52 kg

DRUGS (6)
  1. ALEVE (CAPLET) [Suspect]
     Indication: OSTEOPENIA
     Dosage: TOTAL DAILY DOSE: 220 MG  UNIT DOSE: 220 MG
     Route: 048
     Dates: start: 20080101
  2. EVISTA [Concomitant]
     Route: 065
  3. IRON SUPPLEMENT [Concomitant]
     Route: 065
  4. VITAMIN D [Concomitant]
     Route: 065
  5. BONIVA [Concomitant]
     Route: 065
  6. FERROUS SULFATE TAB [Concomitant]
     Route: 065

REACTIONS (1)
  - DRUG DEPENDENCE [None]
